FAERS Safety Report 24529580 (Version 1)
Quarter: 2024Q4

REPORT INFORMATION
  Report Type: Spontaneous
  Country: TW (occurrence: TW)
  Receive Date: 20241021
  Receipt Date: 20241021
  Transmission Date: 20250115
  Serious: Yes (Other)
  Sender: NOVARTIS
  Company Number: TW-002147023-NVSC2024TW202621

PATIENT
  Age: 9 Year
  Sex: Male

DRUGS (1)
  1. KYMRIAH [Suspect]
     Active Substance: TISAGENLECLEUCEL
     Indication: B precursor type acute leukaemia
     Dosage: UNK, ONCE/SINGLE
     Route: 042
     Dates: start: 20240319, end: 20240319

REACTIONS (3)
  - Post-depletion B-cell recovery [Unknown]
  - Cryptorchism [Unknown]
  - Cytokine release syndrome [Unknown]
